FAERS Safety Report 14197568 (Version 1)
Quarter: 2017Q4

REPORT INFORMATION
  Report Type: Spontaneous
  Country: None (occurrence: US)
  Receive Date: 20171116
  Receipt Date: 20171116
  Transmission Date: 20180321
  Serious: No
  Sender: FDA-Public Use
  Company Number: US-AMPHASTAR PHARMACEUTICALS, INC.-2034423

PATIENT
  Sex: Female
  Weight: 151.36 kg

DRUGS (2)
  1. CHEMOTHERAPY [Suspect]
     Active Substance: UNSPECIFIED INGREDIENT
  2. ENOXAPARIN SODIUM. [Suspect]
     Active Substance: ENOXAPARIN SODIUM
     Route: 058

REACTIONS (2)
  - Blood blister [Unknown]
  - Expired product administered [Unknown]
